FAERS Safety Report 5625205-3 (Version None)
Quarter: 2008Q1

REPORT INFORMATION
  Report Type: 
  Country: None (occurrence: None)
  Receive Date: 20080124
  Receipt Date: 20080116
  Transmission Date: 20080703
  Serious: Yes (Hospitalization)
  Sender: FDA-Public Use
  Company Number: LIT-005-05 -JP

PATIENT
  Age: 18 Month
  Sex: Female

DRUGS (2)
  1. IMMUNE GLOBULIN (HUMAN) [Suspect]
     Indication: KAWASAKI'S DISEASE
     Dosage: 1000 MG/KG; I.V.
     Route: 042
  2. ASPIRIN [Concomitant]

REACTIONS (10)
  - ALANINE AMINOTRANSFERASE INCREASED [None]
  - ASPARTATE AMINOTRANSFERASE INCREASED [None]
  - DISEASE RECURRENCE [None]
  - DRUG RASH WITH EOSINOPHILIA AND SYSTEMIC SYMPTOMS [None]
  - EVANS SYNDROME [None]
  - HEPATOSPLENOMEGALY [None]
  - HUMAN HERPESVIRUS 6 INFECTION [None]
  - KAWASAKI'S DISEASE [None]
  - LEUKOCYTOSIS [None]
  - NO THERAPEUTIC RESPONSE [None]
